FAERS Safety Report 22062220 (Version 1)
Quarter: 2023Q1

REPORT INFORMATION
  Report Type: Report from Study
  Country: US (occurrence: US)
  Receive Date: 20230304
  Receipt Date: 20230304
  Transmission Date: 20230417
  Serious: Yes (Other)
  Sender: FDA-Public Use
  Company Number: US-AMGEN-USASL2022190062

PATIENT
  Sex: Female

DRUGS (3)
  1. PROLIA [Suspect]
     Active Substance: DENOSUMAB
     Indication: Osteoporosis
     Dosage: UNK UNK, Q6MO
     Route: 058
     Dates: start: 2016
  2. PROCAINE [Concomitant]
     Active Substance: PROCAINE
     Indication: Product used for unknown indication
     Route: 065
  3. VITAMINS [Concomitant]
     Active Substance: VITAMINS
     Indication: Product used for unknown indication
     Route: 065

REACTIONS (4)
  - Exostosis [Unknown]
  - Tooth extraction [Unknown]
  - Tooth fracture [Unknown]
  - Weight decreased [Recovering/Resolving]

NARRATIVE: CASE EVENT DATE: 20180101
